FAERS Safety Report 7434747-X (Version None)
Quarter: 2011Q2

REPORT INFORMATION
  Report Type: 
  Country: None (occurrence: None)
  Receive Date: 20110425
  Receipt Date: 20110414
  Transmission Date: 20111010
  Serious: Yes (Death)
  Sender: FDA-Public Use
  Company Number: DE-BAXTER-2011BH005525

PATIENT
  Age: 69 Year
  Sex: Male
  Weight: 78 kg

DRUGS (21)
  1. PHOSPHOSORB [Concomitant]
     Route: 065
  2. EXTRANEAL [Suspect]
     Route: 033
     Dates: start: 20100101
  3. 2.3% FRESENIUS BALANCE [Concomitant]
     Indication: PERITONEAL DIALYSIS
     Route: 065
  4. FUROSEMIDE [Concomitant]
     Route: 065
  5. COLECALCIFEROL [Concomitant]
     Route: 065
  6. PANTOZOL [Concomitant]
     Route: 065
  7. EXTRANEAL [Suspect]
     Indication: DIABETIC NEPHROPATHY
     Route: 033
     Dates: start: 20070712, end: 20101116
  8. HUMALOG [Concomitant]
     Indication: BLOOD GLUCOSE
     Route: 065
  9. ALFACALCIDOL [Concomitant]
     Route: 065
  10. METAMIZOLE [Concomitant]
     Route: 065
  11. HEXAL [Concomitant]
     Route: 065
  12. SIMVASTATIN [Concomitant]
     Route: 065
  13. EXTRANEAL [Suspect]
     Indication: PERITONEAL DIALYSIS
     Route: 033
     Dates: start: 20070712, end: 20101116
  14. BISOPROLOL [Concomitant]
     Route: 065
  15. SEVELAMER [Concomitant]
     Route: 065
  16. WATER SOLUBLE VITAMINS DREISAVIN N [Concomitant]
     Route: 065
  17. EXTRANEAL [Suspect]
     Route: 033
     Dates: start: 20100101
  18. IRON [Concomitant]
     Route: 065
  19. HUMINSULIN BASAL [Concomitant]
     Indication: BLOOD GLUCOSE
  20. IRBESARTAN [Concomitant]
     Route: 065
  21. DARBEPOETIN ALFA [Concomitant]
     Route: 058

REACTIONS (1)
  - BRONCHOPNEUMONIA [None]
